FAERS Safety Report 24538483 (Version 2)
Quarter: 2024Q4

REPORT INFORMATION
  Report Type: Spontaneous
  Country: JP (occurrence: JP)
  Receive Date: 20241023
  Receipt Date: 20241031
  Transmission Date: 20250114
  Serious: Yes (Other)
  Sender: CATALYST PHARMA
  Company Number: JP-CATALYSTPHARMACEUTICALPARTNERS-JP-CATA-24-01206

PATIENT
  Sex: Male

DRUGS (5)
  1. FYCOMPA [Suspect]
     Active Substance: PERAMPANEL
     Indication: Epilepsy
     Dosage: 2 MG/DAY
     Route: 048
     Dates: start: 20240314, end: 20240326
  2. FYCOMPA [Suspect]
     Active Substance: PERAMPANEL
     Dosage: 4 MG/DAY
     Route: 048
     Dates: start: 20240327, end: 20240415
  3. TEGRETOL [Concomitant]
     Active Substance: CARBAMAZEPINE
     Indication: Seizure prophylaxis
     Dosage: 100 MG 1 IN 1 DAY
     Route: 048
     Dates: start: 20240416, end: 20240423
  4. TEGRETOL [Concomitant]
     Active Substance: CARBAMAZEPINE
     Dosage: 200 MG 1 IN 1 DAY
     Route: 048
     Dates: start: 20240424
  5. FAMOTIDINE [Concomitant]
     Active Substance: FAMOTIDINE
     Indication: Product used for unknown indication
     Dosage: 20 MG 1 IN 1 DAY
     Dates: start: 20240314, end: 20240416

REACTIONS (2)
  - Vasogenic cerebral oedema [Recovered/Resolved]
  - Irritability [Recovered/Resolved]

NARRATIVE: CASE EVENT DATE: 20240415
